FAERS Safety Report 12843400 (Version 1)
Quarter: 2016Q4

REPORT INFORMATION
  Report Type: Spontaneous
  Country: US (occurrence: US)
  Receive Date: 20161013
  Receipt Date: 20161013
  Transmission Date: 20170207
  Serious: No
  Sender: FDA-Public Use
  Company Number: US-ACTAVIS-2016-17032

PATIENT
  Sex: Female

DRUGS (1)
  1. GABAPENTIN (AELLC) [Suspect]
     Active Substance: GABAPENTIN
     Indication: RESTLESS LEGS SYNDROME
     Dosage: 100 MG, TID
     Route: 065

REACTIONS (7)
  - Nausea [Unknown]
  - Pain [Unknown]
  - Drug effect incomplete [Unknown]
  - Anxiety [Unknown]
  - Product use issue [Unknown]
  - Insomnia [Unknown]
  - Hyperhidrosis [Unknown]
